FAERS Safety Report 6886167-4 (Version None)
Quarter: 2010Q3

REPORT INFORMATION
  Report Type: 
  Country: None (occurrence: None)
  Receive Date: 20100729
  Receipt Date: 20081023
  Transmission Date: 20110219
  Serious: Yes (Other)
  Sender: FDA-Public Use
  Company Number: US-PFIZER INC-2008092119

PATIENT
  Age: 66 Year
  Sex: Male
  Weight: 90.7 kg

DRUGS (7)
  1. CELECOXIB [Suspect]
     Indication: ARTHRALGIA
  2. IBUPROFEN [Suspect]
     Indication: ARTHRALGIA
     Dosage: 200MG EVERY 8 HOURS TIMES 4 DOSES
     Route: 048
     Dates: start: 20081002
  3. ACETYLSALICYLIC ACID SRT [Suspect]
     Dosage: FREQUENCY: 1 IN 1 DAY
  4. TYLENOL ARTHRITIS EXTENDED RELIEF [Concomitant]
  5. TRICOR [Concomitant]
  6. AVAPRO [Concomitant]
  7. ZETIA [Concomitant]

REACTIONS (1)
  - GASTRIC HAEMORRHAGE [None]
